FAERS Safety Report 24576618 (Version 1)
Quarter: 2024Q4

REPORT INFORMATION
  Report Type: Spontaneous
  Country: NL (occurrence: NL)
  Receive Date: 20241104
  Receipt Date: 20241104
  Transmission Date: 20250114
  Serious: Yes (Other)
  Sender: ELI LILLY AND COMPANY
  Company Number: NL-ELI_LILLY_AND_COMPANY-NL202410017827

PATIENT
  Age: 73 Year
  Sex: Male

DRUGS (4)
  1. INSULIN GLARGINE [Suspect]
     Active Substance: INSULIN GLARGINE
     Indication: Type 2 diabetes mellitus
     Dosage: 56 U, EACH EVENING (2X28 UNITS IN THE EVENING)
     Route: 065
  2. METFORMIN [Concomitant]
     Active Substance: METFORMIN HYDROCHLORIDE
     Indication: Product used for unknown indication
     Dosage: UNK UNK, TID (1 IN THE MORNING AND 2 IN THE EVENING)
     Route: 065
  3. GLICLAZIDE [Concomitant]
     Active Substance: GLICLAZIDE
     Indication: Product used for unknown indication
     Dosage: 3 DOSAGE FORM, EACH MORNING
     Route: 065
  4. INSULIN ASPART [Concomitant]
     Active Substance: INSULIN ASPART
     Indication: Blood glucose decreased

REACTIONS (2)
  - Polyneuropathy [Unknown]
  - Blood glucose increased [Unknown]
